FAERS Safety Report 6917199-5 (Version None)
Quarter: 2010Q3

REPORT INFORMATION
  Report Type: 
  Country: None (occurrence: None)
  Receive Date: 20100810
  Receipt Date: 20081204
  Transmission Date: 20110219
  Serious: No
  Sender: FDA-Public Use
  Company Number: US-PFIZER INC-2008152188

PATIENT
  Sex: Male
  Weight: 79.365 kg

DRUGS (4)
  1. LIPITOR [Suspect]
     Indication: BLOOD CHOLESTEROL INCREASED
     Dosage: 40 MG, 1X/DAY
     Dates: start: 19990101, end: 20080101
  2. LISINOPRIL [Concomitant]
     Dosage: UNK
  3. ATENOLOL [Concomitant]
     Dosage: UNK
  4. ZETIA [Concomitant]
     Dosage: UNK

REACTIONS (9)
  - ABDOMINAL DISCOMFORT [None]
  - ASTHENIA [None]
  - FATIGUE [None]
  - FLATULENCE [None]
  - GASTRIC DISORDER [None]
  - GASTROOESOPHAGEAL REFLUX DISEASE [None]
  - INFLUENZA [None]
  - MUSCLE SPASMS [None]
  - VIRAL INFECTION [None]
